FAERS Safety Report 16008000 (Version 1)
Quarter: 2019Q1

REPORT INFORMATION
  Report Type: Spontaneous
  Country: BR (occurrence: BR)
  Receive Date: 20190224
  Receipt Date: 20190224
  Transmission Date: 20190418
  Serious: Yes (Hospitalization)
  Sender: FDA-Public Use
  Company Number: BR-SERVIER-S19001438

PATIENT

DRUGS (5)
  1. TN UNSPECIFIED [Concomitant]
     Active Substance: TROLNITRATE
     Indication: PRODUCT USED FOR UNKNOWN INDICATION
     Route: 065
  2. TN UNSPECIFIED [Concomitant]
     Active Substance: TROLNITRATE
     Indication: PRODUCT USED FOR UNKNOWN INDICATION
     Route: 065
  3. ONCASPAR [Suspect]
     Active Substance: PEGASPARGASE
     Indication: ACUTE LYMPHOCYTIC LEUKAEMIA
     Dosage: 1000 IU/M2, UNK
     Route: 065
  4. TN UNSPECIFIED [Concomitant]
     Active Substance: TROLNITRATE
     Indication: PRODUCT USED FOR UNKNOWN INDICATION
     Route: 065
  5. TN UNSPECIFIED [Concomitant]
     Active Substance: TROLNITRATE
     Indication: PRODUCT USED FOR UNKNOWN INDICATION
     Route: 065

REACTIONS (2)
  - Coma [Recovered/Resolved]
  - Superior sagittal sinus thrombosis [Recovered/Resolved]

NARRATIVE: CASE EVENT DATE: 201901
